FAERS Safety Report 14057055 (Version 1)
Quarter: 2017Q4

REPORT INFORMATION
  Report Type: Not Available
  Country: ES (occurrence: ES)
  Receive Date: 20171006
  Receipt Date: 20171006
  Transmission Date: 20180321
  Serious: Yes (Other)
  Sender: FDA-Public Use
  Company Number: ES-ANIPHARMA-2017-ES-000051

PATIENT
  Age: 76 Year
  Sex: Female

DRUGS (2)
  1. SULFAMETHOXAZOLE + TRIMETHOPRIM (NON-SPECIFIC) [Suspect]
     Active Substance: SULFAMETHOXAZOLE\TRIMETHOPRIM
  2. ETORICOXIB [Suspect]
     Active Substance: ETORICOXIB

REACTIONS (1)
  - Drug reaction with eosinophilia and systemic symptoms [Unknown]
